FAERS Safety Report 17447725 (Version 2)
Quarter: 2020Q3

REPORT INFORMATION
  Report Type: Spontaneous
  Country: US (occurrence: US)
  Receive Date: 20200221
  Receipt Date: 20200720
  Transmission Date: 20201102
  Serious: Yes (Other)
  Sender: FDA-Public Use
  Company Number: NVSC2020US043584

PATIENT
  Sex: Female

DRUGS (1)
  1. ADAKVEO [Suspect]
     Active Substance: CRIZANLIZUMAB-TMCA
     Indication: SICKLE CELL DISEASE
     Dosage: 5 MG/KG FIRST DOSE WEEK ZERO AND 2 ND DOSE 2 WEEK LATER
     Route: 042

REACTIONS (2)
  - Pain [Recovered/Resolved]
  - Sickle cell anaemia with crisis [Recovered/Resolved]
